APPROVED DRUG PRODUCT: DESMOPRESSIN ACETATE
Active Ingredient: DESMOPRESSIN ACETATE
Strength: 0.2MG
Dosage Form/Route: TABLET;ORAL
Application: A201831 | Product #002
Applicant: GLENMARK PHARMACEUTICALS LTD
Approved: May 28, 2015 | RLD: No | RS: No | Type: DISCN